FAERS Safety Report 16925626 (Version 2)
Quarter: 2019Q4

REPORT INFORMATION
  Report Type: Spontaneous
  Country: EE (occurrence: EE)
  Receive Date: 20191016
  Receipt Date: 20191024
  Transmission Date: 20200122
  Serious: Yes (Death)
  Sender: FDA-Public Use
  Company Number: EE-ABBVIE-19K-221-2965288-00

PATIENT
  Sex: Male

DRUGS (7)
  1. CLOZAPINE. [Concomitant]
     Active Substance: CLOZAPINE
     Indication: HALLUCINATION
     Route: 048
     Dates: start: 20180226
  2. HJERTEMAGNYL [Concomitant]
     Indication: CEREBROVASCULAR ACCIDENT
     Dates: start: 20140101
  3. DUODOPA [Suspect]
     Active Substance: CARBIDOPA\LEVODOPA
     Dosage: MORNING DOSE 7.0 ML/H; ADDITIONAL DOSE 1.1 ML/H; CONTINUOUS DOSE 2.9 ML/H
     Route: 050
     Dates: start: 20170710
  4. VITAMIN B12 [Concomitant]
     Active Substance: CYANOCOBALAMIN
     Indication: PRODUCT USED FOR UNKNOWN INDICATION
     Dates: start: 20160316
  5. FOLIC ACID. [Concomitant]
     Active Substance: FOLIC ACID
     Indication: PRODUCT USED FOR UNKNOWN INDICATION
     Dates: start: 20160316
  6. LEVODOPA/CARBIDOPA [Concomitant]
     Active Substance: CARBIDOPA\LEVODOPA
     Indication: PRODUCT USED FOR UNKNOWN INDICATION
     Dosage: FORM STRENGTH: 50MG/200MG ; 1 TABLET AT NIGHT
     Route: 048
     Dates: start: 20160316
  7. DUODOPA [Suspect]
     Active Substance: CARBIDOPA\LEVODOPA
     Indication: PARKINSON^S DISEASE
     Route: 050
     Dates: start: 20160316

REACTIONS (2)
  - Parkinson^s disease [Fatal]
  - Fall [Unknown]
